FAERS Safety Report 19148489 (Version 4)
Quarter: 2021Q3

REPORT INFORMATION
  Report Type: Report from Study
  Country: US (occurrence: US)
  Receive Date: 20210416
  Receipt Date: 20210809
  Transmission Date: 20211014
  Serious: No
  Sender: FDA-Public Use
  Company Number: NVSC2021US085999

PATIENT
  Sex: Male

DRUGS (1)
  1. COSENTYX [Suspect]
     Active Substance: SECUKINUMAB
     Indication: PSORIASIS
     Dosage: 300 MG/KG, QMO
     Route: 058

REACTIONS (5)
  - Erythema [Recovered/Resolved with Sequelae]
  - Pruritus [Unknown]
  - Product availability issue [Unknown]
  - Product dose omission issue [Unknown]
  - Psoriasis [Unknown]
